FAERS Safety Report 7246405-5 (Version None)
Quarter: 2011Q1

REPORT INFORMATION
  Report Type: 
  Country: None (occurrence: None)
  Receive Date: 20110126
  Receipt Date: 20100528
  Transmission Date: 20110831
  Serious: No
  Sender: FDA-Public Use
  Company Number: US-BAUSCH-2010BL002897

PATIENT
  Age: 84 Year
  Sex: Male

DRUGS (3)
  1. ZYLET [Suspect]
     Indication: LACRIMATION INCREASED
     Route: 047
     Dates: start: 20100416, end: 20100430
  2. ZYLET [Suspect]
     Indication: EYE INFECTION
     Route: 047
     Dates: start: 20100416, end: 20100430
  3. FLOMAX [Concomitant]
     Indication: PROSTATOMEGALY
     Route: 048

REACTIONS (1)
  - DYSURIA [None]
